FAERS Safety Report 15957859 (Version 2)
Quarter: 2019Q1

REPORT INFORMATION
  Report Type: Spontaneous
  Country: GB (occurrence: GB)
  Receive Date: 20190213
  Receipt Date: 20190219
  Transmission Date: 20190417
  Serious: Yes (Other)
  Sender: FDA-Public Use
  Company Number: GB-PFIZER INC-2019057680

PATIENT
  Age: 23 Year
  Sex: Male

DRUGS (2)
  1. MIDODRINE [Suspect]
     Active Substance: MIDODRINE
     Indication: POSTURAL ORTHOSTATIC TACHYCARDIA SYNDROME
     Dosage: 2.5 MG, UNK
  2. BACTERIOSTATIC SODIUM CHLORIDE [Suspect]
     Active Substance: SODIUM CHLORIDE
     Indication: POSTURAL ORTHOSTATIC TACHYCARDIA SYNDROME
     Dosage: 600 MG, UNK

REACTIONS (1)
  - Condition aggravated [Unknown]
